FAERS Safety Report 11905778 (Version 2)
Quarter: 2017Q3

REPORT INFORMATION
  Report Type: Report from Study
  Country: US (occurrence: US)
  Receive Date: 20160111
  Receipt Date: 20170710
  Transmission Date: 20171127
  Serious: Yes (Other)
  Sender: FDA-Public Use
  Company Number: PHEH2015US027490

PATIENT
  Age: 74 Year
  Sex: Female

DRUGS (1)
  1. COSENTYX [Suspect]
     Active Substance: SECUKINUMAB
     Indication: PSORIASIS
     Dosage: 300 MG, QMO (150 MG, 2 PENS FOR EVERY 4 WEEKS)
     Route: 058

REACTIONS (3)
  - Pneumonia [Unknown]
  - Onychoclasis [Unknown]
  - Alopecia [Unknown]

NARRATIVE: CASE EVENT DATE: 20151115
